FAERS Safety Report 13617175 (Version 1)
Quarter: 2017Q2

REPORT INFORMATION
  Report Type: Spontaneous
  Country: US (occurrence: US)
  Receive Date: 20170606
  Receipt Date: 20170606
  Transmission Date: 20170830
  Serious: No
  Sender: FDA-Public Use
  Company Number: US-SA-2017SA056349

PATIENT
  Age: 65 Year
  Sex: Male

DRUGS (2)
  1. SOLOSTAR [Concomitant]
     Active Substance: DEVICE
  2. LANTUS SOLOSTAR [Suspect]
     Active Substance: INSULIN GLARGINE
     Indication: TYPE 2 DIABETES MELLITUS
     Dosage: 40U IN THE MORNING AND 45U IN THE EVENING
     Route: 058

REACTIONS (7)
  - Scratch [Unknown]
  - Balance disorder [Unknown]
  - Abdominal discomfort [Unknown]
  - Off label use [Unknown]
  - Hiatus hernia [Unknown]
  - Fall [Unknown]
  - Pollakiuria [Unknown]

NARRATIVE: CASE EVENT DATE: 20170327
